FAERS Safety Report 8398770-3 (Version None)
Quarter: 2012Q2

REPORT INFORMATION
  Report Type: 
  Country: None (occurrence: None)
  Receive Date: 20120531
  Receipt Date: 20120518
  Transmission Date: 20120825
  Serious: Yes (Hospitalization, Other)
  Sender: FDA-Public Use
  Company Number: US-US-EMD SERONO, INC.-7021592

PATIENT
  Sex: Female

DRUGS (1)
  1. SAIZEN [Suspect]
     Indication: HYPOPITUITARISM
     Dates: start: 20080306

REACTIONS (2)
  - DIABETES INSIPIDUS [None]
  - BLOUNT'S DISEASE [None]
